FAERS Safety Report 9384738 (Version 2)
Quarter: 2013Q3

REPORT INFORMATION
  Report Type: Spontaneous
  Country: CH (occurrence: CH)
  Receive Date: 20130705
  Receipt Date: 20130830
  Transmission Date: 20140515
  Serious: Yes (Hospitalization, Other)
  Sender: FDA-Public Use
  Company Number: CH-ROCHE-1245261

PATIENT
  Age: 65 Year
  Sex: Male

DRUGS (4)
  1. LUCENTIS [Suspect]
     Indication: RETINAL VEIN OCCLUSION
     Route: 050
     Dates: start: 20130320
  2. LUCENTIS [Suspect]
     Route: 050
     Dates: start: 20130420
  3. ASPIRIN [Concomitant]
  4. DUODART [Concomitant]

REACTIONS (1)
  - Immune thrombocytopenic purpura [Recovered/Resolved]
